FAERS Safety Report 7409786-5 (Version None)
Quarter: 2011Q2

REPORT INFORMATION
  Report Type: 
  Country: None (occurrence: None)
  Receive Date: 20110412
  Receipt Date: 20110321
  Transmission Date: 20111010
  Serious: Yes (Other)
  Sender: FDA-Public Use
  Company Number: US-BAYER-201018513NA

PATIENT
  Age: 28 Year
  Sex: Female
  Weight: 70.455 kg

DRUGS (26)
  1. YASMIN [Suspect]
     Indication: MENSTRUAL CYCLE MANAGEMENT
     Dosage: AS USED DOSE: UNK
     Route: 048
     Dates: start: 20080501
  2. FLAXSEED OIL [Concomitant]
  3. CEFTIN [Concomitant]
  4. BIOTIN [Concomitant]
  5. SARAFEM [Concomitant]
  6. FIORICET [Concomitant]
  7. FUROSEMIDE [Concomitant]
  8. CRESTOR [Concomitant]
     Dates: start: 20090701
  9. COLACE [Concomitant]
  10. LUNESTA [Concomitant]
  11. VALERIAAN [Concomitant]
  12. YASMIN [Suspect]
     Indication: PREMENSTRUAL SYNDROME
  13. IBUPROFEN [Concomitant]
  14. MULTI-VITAMIN [Concomitant]
  15. BIOTIN [Concomitant]
  16. PAXIL [Concomitant]
  17. MULTI-VITAMIN [Concomitant]
  18. FIORICET [Concomitant]
  19. WARFARIN [Concomitant]
     Dosage: 3.0
  20. CEFUROXIME [Concomitant]
  21. PAROXETINE [Concomitant]
  22. DOCUSATE SODIUM [Concomitant]
  23. CRESTOR [Concomitant]
  24. FLAXSEED OIL [Concomitant]
  25. YAZ [Suspect]
     Dosage: UNK
     Dates: start: 20080501, end: 20090601
  26. NEXIUM [Concomitant]

REACTIONS (11)
  - ERYTHEMA [None]
  - ILIAC ARTERY EMBOLISM [None]
  - PAIN IN EXTREMITY [None]
  - SPIDER VEIN [None]
  - VASODILATATION [None]
  - HYPOAESTHESIA [None]
  - DEEP VEIN THROMBOSIS [None]
  - BACK PAIN [None]
  - OEDEMA PERIPHERAL [None]
  - JOINT SWELLING [None]
  - SCIATICA [None]
